FAERS Safety Report 11461686 (Version 1)
Quarter: 2015Q3

REPORT INFORMATION
  Report Type: Spontaneous
  Country: US (occurrence: US)
  Receive Date: 20150831
  Receipt Date: 20150831
  Transmission Date: 20151125
  Serious: No
  Sender: FDA-Public Use
  Company Number: US-ELI_LILLY_AND_COMPANY-US200908005612

PATIENT
  Age: 46 Year
  Sex: Male

DRUGS (3)
  1. BYSTOLIC [Concomitant]
     Active Substance: NEBIVOLOL HYDROCHLORIDE
     Dosage: UNK, UNKNOWN
     Route: 065
     Dates: start: 20090818
  2. POTASSIUM [Concomitant]
     Active Substance: POTASSIUM
     Dosage: UNK, UNKNOWN
     Route: 065
  3. CYMBALTA [Suspect]
     Active Substance: DULOXETINE HYDROCHLORIDE
     Indication: ANXIETY
     Dosage: UNK, UNKNOWN
     Route: 065
     Dates: start: 20090818, end: 20090819

REACTIONS (1)
  - Depersonalisation [Unknown]
